FAERS Safety Report 14038643 (Version 1)
Quarter: 2017Q4

REPORT INFORMATION
  Report Type: Spontaneous
  Country: JP (occurrence: JP)
  Receive Date: 20171004
  Receipt Date: 20171004
  Transmission Date: 20180321
  Serious: Yes (Hospitalization)
  Sender: FDA-Public Use
  Company Number: JP-JNJFOC-20171002128

PATIENT
  Age: 78 Year
  Sex: Male
  Weight: 63 kg

DRUGS (7)
  1. MICARDIS [Concomitant]
     Active Substance: TELMISARTAN
     Dosage: BEFORE 2009
     Route: 048
  2. ONGLYZA [Concomitant]
     Active Substance: SAXAGLIPTIN HYDROCHLORIDE
     Indication: TYPE 2 DIABETES MELLITUS
     Route: 048
     Dates: start: 20150612
  3. NORVASC [Concomitant]
     Active Substance: AMLODIPINE BESYLATE
     Route: 048
     Dates: start: 20151016
  4. CANAGLU [Suspect]
     Active Substance: CANAGLIFLOZIN
     Indication: TYPE 2 DIABETES MELLITUS
     Route: 048
     Dates: start: 20160212, end: 20170714
  5. SUREPOST [Concomitant]
     Active Substance: REPAGLINIDE
     Indication: TYPE 2 DIABETES MELLITUS
     Route: 048
     Dates: start: 201207
  6. METGLUCO [Concomitant]
     Active Substance: METFORMIN HYDROCHLORIDE
     Indication: TYPE 2 DIABETES MELLITUS
     Route: 048
     Dates: start: 201207
  7. SEIBULE [Concomitant]
     Active Substance: MIGLITOL
     Indication: TYPE 2 DIABETES MELLITUS
     Dosage: BEFORE 2009
     Route: 048

REACTIONS (1)
  - Diabetes mellitus management [Recovered/Resolved]

NARRATIVE: CASE EVENT DATE: 20170219
